FAERS Safety Report 18204266 (Version 1)
Quarter: 2020Q3

REPORT INFORMATION
  Report Type: Report from Study
  Country: FR (occurrence: FR)
  Receive Date: 20200828
  Receipt Date: 20200828
  Transmission Date: 20201103
  Serious: Yes (Other)
  Sender: FDA-Public Use
  Company Number: FR-ROCHE-2665074

PATIENT
  Age: 55 Year
  Sex: Male

DRUGS (1)
  1. TOCILIZUMAB. [Suspect]
     Active Substance: TOCILIZUMAB
     Indication: COVID-19
     Dosage: 20 MG/ML, TOCILIZUMAB 8MG/KG DAY 1 AND IF NO RESPONSE (NO DECREASE OF OXYGEN REQUIREMENT) A SECOND I
     Route: 042
     Dates: start: 20200331, end: 20200404

REACTIONS (4)
  - Hepatocellular injury [Recovered/Resolved]
  - Pseudomonas infection [Recovered/Resolved]
  - Pneumonia [Recovered/Resolved]
  - Staphylococcal infection [Recovered/Resolved]

NARRATIVE: CASE EVENT DATE: 20200403
